FAERS Safety Report 19257366 (Version 1)
Quarter: 2021Q2

REPORT INFORMATION
  Report Type: Spontaneous
  Country: JP (occurrence: JP)
  Receive Date: 20210513
  Receipt Date: 20210513
  Transmission Date: 20210717
  Serious: Yes (Other)
  Sender: FDA-Public Use
  Company Number: JP-ASTRAZENECA-2021A412340

PATIENT
  Sex: Female

DRUGS (3)
  1. OTHER AGENTS AFFECTING RESPIRATORY ORGANS [Concomitant]
     Dosage: DOSE UNKNOWN
     Route: 055
  2. FASENRA [Suspect]
     Active Substance: BENRALIZUMAB
     Dosage: DOSE UNKNOWN
     Route: 058
  3. VACCINES [Concomitant]
     Active Substance: UNSPECIFIED INGREDIENT
     Dosage: DOSE UNKNOWN
     Route: 030

REACTIONS (11)
  - Gastroenteritis eosinophilic [Unknown]
  - Pain in extremity [Unknown]
  - Asthma [Unknown]
  - Eosinophilic otitis media [Unknown]
  - Eosinophilia [Unknown]
  - Eosinophil count abnormal [Unknown]
  - Deafness [Unknown]
  - Tinnitus [Unknown]
  - Pyrexia [Unknown]
  - Hypoaesthesia [Unknown]
  - Seizure [Unknown]
